FAERS Safety Report 11822692 (Version 1)
Quarter: 2015Q4

REPORT INFORMATION
  Report Type: Spontaneous
  Country: US (occurrence: US)
  Receive Date: 20151210
  Receipt Date: 20151210
  Transmission Date: 20160305
  Serious: No
  Sender: FDA-Public Use
  Company Number: US-GLAXOSMITHKLINE-US2015GSK173564

PATIENT
  Sex: Female

DRUGS (2)
  1. INFLUENZA VACCINE UNSPECIFIED 2015-2016 SEASON SOLUTION FOR INJECTION [Suspect]
     Active Substance: INFLUENZA VIRUS VACCINE
     Indication: PROPHYLAXIS
     Dates: start: 20151125, end: 20151125
  2. ADVAIR DISKUS [Suspect]
     Active Substance: FLUTICASONE PROPIONATE\SALMETEROL XINAFOATE
     Indication: CHRONIC OBSTRUCTIVE PULMONARY DISEASE
     Dosage: 250 MCG
     Dates: start: 2015

REACTIONS (2)
  - Speech disorder [Unknown]
  - Malaise [Unknown]

NARRATIVE: CASE EVENT DATE: 2015
